FAERS Safety Report 17581541 (Version 1)
Quarter: 2020Q1

REPORT INFORMATION
  Report Type: Spontaneous
  Country: US (occurrence: US)
  Receive Date: 20200325
  Receipt Date: 20200325
  Transmission Date: 20200409
  Serious: Yes (Death)
  Sender: FDA-Public Use
  Company Number: None

PATIENT
  Age: 56 Year
  Sex: Female

DRUGS (22)
  1. LEVOCETIRIZI, ZYRTEC [Concomitant]
  2. PREDNISONE, PROCHLORPER, [Concomitant]
  3. XALKORI [Suspect]
     Active Substance: CRIZOTINIB
     Indication: LUNG NEOPLASM MALIGNANT
     Route: 048
     Dates: start: 20180626
  4. ACCOLATE [Concomitant]
     Active Substance: ZAFIRLUKAST
  5. ALLEGRA-D [Concomitant]
     Active Substance: FEXOFENADINE\PSEUDOEPHEDRINE
  6. BENADRYL [Concomitant]
     Active Substance: DIPHENHYDRAMINE HYDROCHLORIDE
  7. OMEPRAZOLE. [Concomitant]
     Active Substance: OMEPRAZOLE
  8. GABAPENTIN. [Concomitant]
     Active Substance: GABAPENTIN
  9. IBUPROFEN. [Concomitant]
     Active Substance: IBUPROFEN
  10. LIDOCAINE, ZOFRAN [Concomitant]
  11. MELATONIN, SLIVER NITRA [Concomitant]
  12. PHENTERMINE. [Concomitant]
     Active Substance: PHENTERMINE
  13. B12 + C 1000 + D3 + MULTI-VITAMIN [Concomitant]
  14. CALCITRIOL. [Concomitant]
     Active Substance: CALCITRIOL
  15. COLACE [Concomitant]
     Active Substance: DOCUSATE SODIUM
  16. CYCLOBENZAPR [Concomitant]
     Active Substance: CYCLOBENZAPRINE
  17. ADVAIR HFA [Concomitant]
     Active Substance: FLUTICASONE PROPIONATE\SALMETEROL XINAFOATE
  18. BISACODYL. [Concomitant]
     Active Substance: BISACODYL
  19. CLINDAMYCIN. [Concomitant]
     Active Substance: CLINDAMYCIN
  20. FLONASE [Concomitant]
     Active Substance: FLUTICASONE PROPIONATE
  21. FOLIC ACID. [Concomitant]
     Active Substance: FOLIC ACID
  22. FUROSEMIDE. [Concomitant]
     Active Substance: FUROSEMIDE

REACTIONS (1)
  - Death [None]

NARRATIVE: CASE EVENT DATE: 20200324
